FAERS Safety Report 17063965 (Version 1)
Quarter: 2019Q4

REPORT INFORMATION
  Report Type: Spontaneous
  Country: US (occurrence: US)
  Receive Date: 20191122
  Receipt Date: 20191122
  Transmission Date: 20200122
  Serious: Yes (Other)
  Sender: FDA-Public Use
  Company Number: US-NOVOPROD-696858

PATIENT
  Age: 60 Year
  Sex: Female

DRUGS (3)
  1. SAXENDA [Suspect]
     Active Substance: LIRAGLUTIDE
     Indication: PRODUCT USED FOR UNKNOWN INDICATION
     Route: 058
  2. TRESIBA [Suspect]
     Active Substance: INSULIN DEGLUDEC
     Indication: PRODUCT USED FOR UNKNOWN INDICATION
     Route: 058
  3. TRULICITY [Concomitant]
     Active Substance: DULAGLUTIDE
     Indication: PRODUCT USED FOR UNKNOWN INDICATION
     Route: 058

REACTIONS (9)
  - Swollen tongue [Unknown]
  - Fat tissue increased [Unknown]
  - Blood glucose fluctuation [Unknown]
  - Dysphagia [Unknown]
  - Headache [Unknown]
  - Dizziness [Unknown]
  - Synovial cyst [Unknown]
  - Lipoma [Unknown]
  - Lip swelling [Unknown]
